FAERS Safety Report 8087285-8 (Version None)
Quarter: 2012Q1

REPORT INFORMATION
  Report Type: 
  Country: None (occurrence: None)
  Receive Date: 20120128
  Receipt Date: 20110516
  Transmission Date: 20120608
  Serious: No
  Sender: FDA-Public Use
  Company Number: US-ABBOTT-11P-163-0726058-00

PATIENT
  Age: 63 Year
  Sex: Male

DRUGS (10)
  1. ZETIA [Concomitant]
     Indication: BLOOD CHOLESTEROL INCREASED
     Dosage: 10MG DAILY
  2. GEMFIBROZIL [Concomitant]
     Indication: BLOOD TRIGLYCERIDES INCREASED
     Dosage: 600MG DAILY
  3. ACTOS [Concomitant]
     Indication: DIABETES MELLITUS
     Dosage: 30MG DAILY
  4. HUMIRA [Suspect]
     Indication: PSORIASIS
     Dates: start: 20110422
  5. BYETTA [Concomitant]
     Indication: DIABETES MELLITUS
  6. ALLOPURINOL [Concomitant]
     Indication: NEPHROLITHIASIS
     Dosage: 300MG DAILY
  7. ADVICOR [Concomitant]
     Indication: BLOOD CHOLESTEROL INCREASED
     Dosage: 500MG DAILY
  8. LISINOPRIL [Concomitant]
     Indication: HYPERTENSION
     Dosage: 20MG DAILY
  9. HUMALOG [Concomitant]
     Indication: DIABETES MELLITUS
  10. HUMULIN R [Concomitant]
     Indication: DIABETES MELLITUS

REACTIONS (5)
  - HEADACHE [None]
  - NASOPHARYNGITIS [None]
  - CONSTIPATION [None]
  - OROPHARYNGEAL PAIN [None]
  - MUSCULAR WEAKNESS [None]
